FAERS Safety Report 9251905 (Version 1)
Quarter: 2013Q2

REPORT INFORMATION
  Report Type: Spontaneous
  Country: US (occurrence: US)
  Receive Date: 20130424
  Receipt Date: 20130424
  Transmission Date: 20140414
  Serious: No
  Sender: FDA-Public Use
  Company Number: US-PFIZER INC-2013128449

PATIENT
  Age: 72 Year
  Sex: Female
  Weight: 87.08 kg

DRUGS (1)
  1. LYRICA [Suspect]
     Indication: FIBROMYALGIA
     Dosage: UNK
     Dates: start: 201304

REACTIONS (2)
  - Local swelling [Unknown]
  - Joint swelling [Unknown]
